FAERS Safety Report 18461572 (Version 2)
Quarter: 2020Q4

REPORT INFORMATION
  Report Type: Spontaneous
  Country: US (occurrence: US)
  Receive Date: 20201104
  Receipt Date: 20201120
  Transmission Date: 20210114
  Serious: Yes (Hospitalization, Other)
  Sender: FDA-Public Use
  Company Number: US-BRISTOL-MYERS SQUIBB COMPANY-BMS-2020-092061

PATIENT
  Age: 64 Year
  Sex: Female
  Weight: 181.9 kg

DRUGS (5)
  1. FASLODEX [Suspect]
     Active Substance: FULVESTRANT
     Indication: BREAST CANCER METASTATIC
     Dosage: 500 MILLIGRAM, QMO
     Route: 050
     Dates: start: 2013
  2. ELIQUIS [Suspect]
     Active Substance: APIXABAN
     Indication: PRODUCT USED FOR UNKNOWN INDICATION
     Dosage: UNK
     Route: 065
     Dates: end: 20201023
  3. IBRANCE [Suspect]
     Active Substance: PALBOCICLIB
     Indication: BREAST CANCER METASTATIC
     Dosage: UNK
     Route: 065
     Dates: end: 20201006
  4. IBRANCE [Suspect]
     Active Substance: PALBOCICLIB
     Dosage: 75 MILLIGRAM DAILY FOR 3 WEEKS FOLLOWED BY 1 WEEKOFF
     Route: 048
     Dates: start: 20201111
  5. FASLODEX [Suspect]
     Active Substance: FULVESTRANT
     Dosage: 500 MILLIGRAM, DAYS 1 AND 15 OF CYCLE 1 THEN DAY 1 OF EACH SUBSEQUENT 28 DAY CYCLE
     Route: 030
     Dates: start: 20201020

REACTIONS (3)
  - Dyspnoea [Recovered/Resolved]
  - Pulmonary embolism [Recovered/Resolved]
  - Thrombosis in device [Recovered/Resolved]

NARRATIVE: CASE EVENT DATE: 20201023
